FAERS Safety Report 8374522-5 (Version None)
Quarter: 2012Q2

REPORT INFORMATION
  Report Type: 
  Country: None (occurrence: None)
  Receive Date: 20120521
  Receipt Date: 20120511
  Transmission Date: 20120825
  Serious: Yes (Other)
  Sender: FDA-Public Use
  Company Number: CN-ASTRAZENECA-2012SE30296

PATIENT
  Age: 66 Year
  Sex: Female
  Weight: 54 kg

DRUGS (8)
  1. PROPOFOL [Suspect]
     Dosage: 5-7 MG/(KG.H) CONTINUOUSLY
     Route: 042
  2. MIDAZOLAM [Concomitant]
     Route: 048
  3. PROPOFOL [Suspect]
     Indication: ANAESTHESIA
     Route: 042
  4. FENTANYL [Concomitant]
     Indication: ANAESTHESIA
     Route: 042
  5. COMPOUND SODIUM LACTATE [Concomitant]
     Dosage: 10 ML/(KG.H)
     Route: 042
  6. VECURONIUM AMMONIUM [Concomitant]
     Indication: ANAESTHESIA
  7. PROPOFOL [Suspect]
     Route: 042
  8. FENTANYL [Concomitant]
     Route: 042

REACTIONS (1)
  - BRAIN STEM AUDITORY EVOKED RESPONSE ABNORMAL [None]
